FAERS Safety Report 6267281 (Version 2)
Quarter: 2020Q3

REPORT INFORMATION
  Report Type: Spontaneous
  Country: US (occurrence: US)
  Receive Date: 20070309
  Receipt Date: 20200806
  Transmission Date: 20201103
  Serious: Yes (Death, Other)
  Sender: FDA-Public Use
  Company Number: GXKR2007US02031

PATIENT

DRUGS (2)
  1. TERBUTALINE [Concomitant]
     Active Substance: TERBUTALINE
     Indication: FOETAL EXPOSURE DURING PREGNANCY
     Dosage: MATERNAL DOSE: 5 MG, Q4H
     Route: 064
  2. INDOMETHACIN. [Suspect]
     Active Substance: INDOMETHACIN
     Indication: FOETAL EXPOSURE DURING PREGNANCY
     Dosage: MATERNAL DOSE: 25 MG, TID
     Route: 064

REACTIONS (6)
  - Streptococcal sepsis [Fatal]
  - Neonatal respiratory distress syndrome [Fatal]
  - Foetal exposure during pregnancy [Unknown]
  - Placental transfusion syndrome [Unknown]
  - Hydrops foetalis [Unknown]
  - Product administration error [Unknown]
